FAERS Safety Report 20960556 (Version 2)
Quarter: 2022Q2

REPORT INFORMATION
  Report Type: Spontaneous
  Country: JP (occurrence: JP)
  Receive Date: 20220615
  Receipt Date: 20220623
  Transmission Date: 20220721
  Serious: Yes (Death)
  Sender: FDA-Public Use
  Company Number: JP-ADVANZ PHARMA-202205003191

PATIENT

DRUGS (10)
  1. ZONISAMIDE [Suspect]
     Active Substance: ZONISAMIDE
     Indication: Parkinson^s disease
     Dosage: UNK (TRERIEF ORODISPERSIBLE TABLET)
     Route: 048
  2. DROXIDOPA [Suspect]
     Active Substance: DROXIDOPA
     Indication: Product used for unknown indication
     Dosage: UNK
     Route: 048
  3. ISTRADEFYLLINE [Concomitant]
     Active Substance: ISTRADEFYLLINE
     Dosage: UNK
  4. MAGNESIUM OXIDE [Concomitant]
     Active Substance: MAGNESIUM OXIDE
     Dosage: UNK (ORAL DRUG UNSPECIFIED FORM)
     Route: 048
  5. STALEVO [Concomitant]
     Active Substance: CARBIDOPA\ENTACAPONE\LEVODOPA
     Dosage: UNK
  6. BIO-THREE [Concomitant]
     Active Substance: HERBALS
     Dosage: UNK
  7. GASTER [Concomitant]
     Active Substance: FAMOTIDINE
     Dosage: UNK (ORAL DRUG UNSPECIFIED FORM)
     Route: 048
  8. ASPIRIN [Concomitant]
     Active Substance: ASPIRIN
     Dosage: UNK
  9. BISOPROLOL FUMARATE [Concomitant]
     Active Substance: BISOPROLOL FUMARATE
     Dosage: UNK
  10. TRAMADOL [Concomitant]
     Active Substance: TRAMADOL
     Dosage: UNK

REACTIONS (2)
  - Dysphagia [Fatal]
  - Condition aggravated [Fatal]
